FAERS Safety Report 7568599-4 (Version None)
Quarter: 2011Q2

REPORT INFORMATION
  Report Type: 
  Country: None (occurrence: None)
  Receive Date: 20110623
  Receipt Date: 20110615
  Transmission Date: 20111010
  Serious: Yes (Death, Other)
  Sender: FDA-Public Use
  Company Number: TN-JNJFOC-20101208172

PATIENT
  Age: 19 Year
  Sex: Female

DRUGS (4)
  1. ANTI TUBERCULOSIS MEDICATION [Suspect]
     Route: 065
  2. TERBINAFINE HCL [Suspect]
     Indication: FUNGAL INFECTION
     Route: 065
  3. KETOCONAZOLE [Suspect]
     Indication: FUNGAL INFECTION
     Route: 065
  4. ANTI TUBERCULOSIS MEDICATION [Suspect]
     Indication: TUBERCULOSIS
     Route: 065

REACTIONS (4)
  - DRUG INEFFECTIVE [None]
  - NEOPLASM [None]
  - SEPTIC SHOCK [None]
  - ALOPECIA [None]
